FAERS Safety Report 9798814 (Version 1)
Quarter: 2014Q1

REPORT INFORMATION
  Report Type: Spontaneous
  Country: US (occurrence: US)
  Receive Date: 20140106
  Receipt Date: 20140106
  Transmission Date: 20141002
  Serious: No
  Sender: FDA-Public Use
  Company Number: US-GILEAD-2010-0032283

PATIENT
  Age: 83 Year
  Sex: Female
  Weight: 65.77 kg

DRUGS (10)
  1. LETAIRIS [Suspect]
     Indication: PULMONARY ARTERIAL HYPERTENSION
     Route: 048
     Dates: start: 20100405
  2. ATENOLOL [Concomitant]
  3. RAMIPRIL [Concomitant]
  4. PLAVIX [Concomitant]
  5. WARFARIN [Concomitant]
  6. GLIMPIRIDE [Concomitant]
  7. SPIRONOLACTONE [Concomitant]
  8. AMOXICILLIN [Concomitant]
  9. MIRAPEX [Concomitant]
  10. AMBIEN [Concomitant]

REACTIONS (1)
  - Unevaluable event [Unknown]
